FAERS Safety Report 13602121 (Version 1)
Quarter: 2017Q2

REPORT INFORMATION
  Report Type: Spontaneous
  Country: US (occurrence: US)
  Receive Date: 20170601
  Receipt Date: 20170601
  Transmission Date: 20170830
  Serious: Yes (Hospitalization)
  Sender: FDA-Public Use
  Company Number: US-ASPEN PHARMA TRADING LIMITED US-AS-2017-003733

PATIENT
  Age: 14 Year
  Sex: Male
  Weight: 78.5 kg

DRUGS (8)
  1. TIOGUANINE [Suspect]
     Active Substance: THIOGUANINE ANHYDROUS
     Indication: CHEMOTHERAPY
     Route: 048
     Dates: start: 20170411
  2. VINCRISTINE [Suspect]
     Active Substance: VINCRISTINE
     Indication: CHEMOTHERAPY
     Route: 042
     Dates: start: 20161118
  3. INCB018424 [Suspect]
     Active Substance: RUXOLITINIB
     Dosage: LAST DOSE
     Route: 065
     Dates: start: 20170424
  4. PEGASPARGASE [Suspect]
     Active Substance: PEGASPARGASE
     Indication: CHEMOTHERAPY
     Route: 042
     Dates: start: 20161021
  5. PEGASPARGASE [Suspect]
     Active Substance: PEGASPARGASE
     Dosage: LAST DOSE
     Route: 065
     Dates: start: 20170425
  6. INCB018424 [Suspect]
     Active Substance: RUXOLITINIB
     Indication: CHEMOTHERAPY CYTOKINE PROPHYLAXIS
     Route: 048
     Dates: start: 20161007
  7. VINCRISTINE [Suspect]
     Active Substance: VINCRISTINE
     Dosage: LAST DOSE
     Route: 065
     Dates: start: 20170425
  8. TIOGUANINE [Suspect]
     Active Substance: THIOGUANINE ANHYDROUS
     Dosage: LAST DOSE
     Route: 065
     Dates: start: 20170424

REACTIONS (1)
  - Febrile neutropenia [Not Recovered/Not Resolved]

NARRATIVE: CASE EVENT DATE: 20170430
